FAERS Safety Report 7701374-6 (Version None)
Quarter: 2011Q3

REPORT INFORMATION
  Report Type: 
  Country: None (occurrence: None)
  Receive Date: 20110822
  Receipt Date: 20110809
  Transmission Date: 20111222
  Serious: Yes (Disabling)
  Sender: FDA-Public Use
  Company Number: US-CELGENEUS-163-21660-11043122

PATIENT
  Sex: Female
  Weight: 47.216 kg

DRUGS (1)
  1. ABRAXANE [Suspect]
     Indication: BREAST CANCER
     Dosage: 377 MILLIGRAM
     Route: 041
     Dates: start: 20100812, end: 20110218

REACTIONS (1)
  - PERONEAL NERVE PALSY [None]
